FAERS Safety Report 4662853-1 (Version None)
Quarter: 2005Q2

REPORT INFORMATION
  Report Type: 
  Country: None (occurrence: None)
  Receive Date: 20050502
  Receipt Date: 20050215
  Transmission Date: 20051028
  Serious: No
  Sender: FDA-Public Use
  Company Number: 200510795US

PATIENT
  Age: 62 Year
  Sex: Female

DRUGS (5)
  1. KETEK [Suspect]
     Indication: SINUSITIS
     Dosage: QD
     Dates: start: 20050125, end: 20050129
  2. ALLEGRA [Concomitant]
  3. MOTRIN [Concomitant]
  4. NYSTATIN [Concomitant]
  5. NASACORT AQ [Concomitant]

REACTIONS (4)
  - DRY MOUTH [None]
  - DYSGEUSIA [None]
  - SINUS CONGESTION [None]
  - TONGUE DISORDER [None]
